FAERS Safety Report 15487717 (Version 1)
Quarter: 2018Q4

REPORT INFORMATION
  Report Type: Report from Study
  Country: JP (occurrence: JP)
  Receive Date: 20181011
  Receipt Date: 20181011
  Transmission Date: 20190205
  Serious: Yes (Hospitalization)
  Sender: FDA-Public Use
  Company Number: JP-TEVA-201802_00001327

PATIENT
  Age: 34 Year
  Sex: Male
  Weight: 56.6 kg

DRUGS (13)
  1. SULFASALAZINE. [Concomitant]
     Active Substance: SULFASALAZINE
     Indication: CROHN^S DISEASE
     Dosage: 2000 MILLIGRAM DAILY;
     Route: 048
  2. FOLIC ACID. [Concomitant]
     Active Substance: FOLIC ACID
     Indication: VITAMIN SUPPLEMENTATION
     Dosage: 5 MILLIGRAM DAILY;
     Route: 048
  3. BETAMETHASONE SODIUM PHOSPHATE [Concomitant]
     Active Substance: BETAMETHASONE SODIUM PHOSPHATE
     Indication: CROHN^S DISEASE
     Dosage: 3 MILLIGRAM DAILY;
     Route: 054
     Dates: start: 20140316
  4. MESALAZINE [Concomitant]
     Active Substance: MESALAMINE
     Indication: CROHN^S DISEASE
     Dosage: 1000 MILLIGRAM DAILY;
     Route: 048
  5. BENFOTIAMINE, CYANOCOBALAMIN, PYRIDOXINE HYDROCHLORIDE [Concomitant]
     Indication: MALNUTRITION
     Dosage: 75 MILLIGRAM DAILY;
     Route: 048
     Dates: start: 20150217
  6. FERROUS SODIUM CITRATE [Concomitant]
     Active Substance: SODIUM FERROUS CITRATE
     Indication: IRON DEFICIENCY ANAEMIA
     Dosage: 50 MILLIGRAM DAILY;
     Route: 048
  7. PREDNISOLONE TABLETS 5MG. [Suspect]
     Active Substance: PREDNISOLONE
     Indication: CROHN^S DISEASE
     Dosage: 10 MILLIGRAM DAILY;
     Route: 048
  8. MINERALS NOS, VITAMINS NOS [Concomitant]
     Indication: CROHN^S DISEASE
     Route: 048
  9. CIPROFLOXACIN HYDROCHLORIDE. [Concomitant]
     Active Substance: CIPROFLOXACIN HYDROCHLORIDE
     Indication: CROHN^S DISEASE
     Dosage: 200 MILLIGRAM DAILY;
     Route: 048
  10. VEDOLIZUMAB [Suspect]
     Active Substance: VEDOLIZUMAB
     Indication: CROHN^S DISEASE
     Route: 041
     Dates: start: 20150202, end: 20150518
  11. AZATHIOPRINE. [Concomitant]
     Active Substance: AZATHIOPRINE
     Indication: CROHN^S DISEASE
     Route: 048
  12. POLAPREZINC [Concomitant]
     Active Substance: POLAPREZINC
     Indication: DYSGEUSIA
     Dosage: 9 DOSAGE FORMS DAILY;
     Route: 048
     Dates: start: 20150217
  13. LIDOCAINE. [Concomitant]
     Active Substance: LIDOCAINE
     Indication: CROHN^S DISEASE
     Route: 062
     Dates: start: 20140316

REACTIONS (1)
  - Dyslalia [Recovering/Resolving]

NARRATIVE: CASE EVENT DATE: 20150323
